FAERS Safety Report 25251780 (Version 1)
Quarter: 2025Q2

REPORT INFORMATION
  Report Type: Spontaneous
  Country: US (occurrence: US)
  Receive Date: 20250429
  Receipt Date: 20250429
  Transmission Date: 20250716
  Serious: No
  Sender: TRAVERE THERAPEUTICS
  Company Number: US-TRAVERE-2025TVT00489

PATIENT
  Age: 29 Year
  Sex: Male

DRUGS (15)
  1. FILSPARI [Suspect]
     Active Substance: SPARSENTAN
     Indication: IgA nephropathy
     Route: 048
  2. TARPEYO [Suspect]
     Active Substance: BUDESONIDE
     Indication: Product used for unknown indication
  3. ATORVASTATIN [Suspect]
     Active Substance: ATORVASTATIN
     Indication: Product used for unknown indication
  4. CLONIDINE [Concomitant]
     Active Substance: CLONIDINE
  5. LOVASTATIN [Concomitant]
     Active Substance: LOVASTATIN
  6. FERROUS GLUCONATE [Concomitant]
     Active Substance: FERROUS GLUCONATE
  7. VASCEPA [Concomitant]
     Active Substance: ICOSAPENT ETHYL
  8. NIFEDIPINE [Concomitant]
     Active Substance: NIFEDIPINE
  9. Calcium\VitaminD [Concomitant]
  10. CARVEDILOL [Concomitant]
     Active Substance: CARVEDILOL
  11. BUMETANIDE [Concomitant]
     Active Substance: BUMETANIDE
  12. PANTOPRAZOLE [Concomitant]
     Active Substance: PANTOPRAZOLE
  13. FARXIGA [Concomitant]
     Active Substance: DAPAGLIFLOZIN PROPANEDIOL
  14. ALENDRONATE [Concomitant]
     Active Substance: ALENDRONATE SODIUM
  15. HYDRALAZINE [Concomitant]
     Active Substance: HYDRALAZINE HYDROCHLORIDE

REACTIONS (2)
  - Drug hypersensitivity [Unknown]
  - Hypotension [Unknown]

NARRATIVE: CASE EVENT DATE: 20240516
